FAERS Safety Report 12717277 (Version 1)
Quarter: 2016Q3

REPORT INFORMATION
  Report Type: Spontaneous
  Country: US (occurrence: US)
  Receive Date: 20160906
  Receipt Date: 20160906
  Transmission Date: 20161109
  Serious: Yes (Death)
  Sender: FDA-Public Use
  Company Number: None

PATIENT
  Age: 20 Year
  Sex: Female
  Weight: 51.75 kg

DRUGS (4)
  1. NUVARING [Suspect]
     Active Substance: ETHINYL ESTRADIOL\ETONOGESTREL
     Indication: MENORRHAGIA
     Dosage: OTHER STRENGTH:;OTHER DOSE:;OTHER FREQUENCY:REPLACE MONTHLY;OTHER ROUTE:
     Route: 067
     Dates: start: 20160513, end: 20160729
  2. IBUPROFEN. [Concomitant]
     Active Substance: IBUPROFEN
  3. NUVARING [Suspect]
     Active Substance: ETHINYL ESTRADIOL\ETONOGESTREL
     Indication: CONTRACEPTION
     Dosage: OTHER STRENGTH:;OTHER DOSE:;OTHER FREQUENCY:REPLACE MONTHLY;OTHER ROUTE:
     Route: 067
     Dates: start: 20160513, end: 20160729
  4. ACETAMINOPHEN. [Concomitant]
     Active Substance: ACETAMINOPHEN

REACTIONS (5)
  - Pulmonary embolism [None]
  - Cardiac arrest [None]
  - Fall [None]
  - Consciousness fluctuating [None]
  - Wisdom teeth removal [None]

NARRATIVE: CASE EVENT DATE: 20160729
